FAERS Safety Report 9726423 (Version 1)
Quarter: 2013Q4

REPORT INFORMATION
  Report Type: Spontaneous
  Country: US (occurrence: US)
  Receive Date: 20131203
  Receipt Date: 20131203
  Transmission Date: 20140711
  Serious: Yes (Hospitalization)
  Sender: FDA-Public Use
  Company Number: US-BAYER-2013-145554

PATIENT
  Age: 25 Year
  Sex: Female
  Weight: 82 kg

DRUGS (1)
  1. BAYER HEADACHE RELIEF [Suspect]
     Indication: HEADACHE
     Dosage: DF,ONCE
     Route: 048

REACTIONS (2)
  - Overdose [None]
  - Vomiting [None]
